FAERS Safety Report 6274771-6 (Version None)
Quarter: 2009Q3

REPORT INFORMATION
  Report Type: 
  Country: None (occurrence: None)
  Receive Date: 20090717
  Receipt Date: 20090714
  Transmission Date: 20100115
  Serious: Yes (Death, Other)
  Sender: FDA-Public Use
  Company Number: 2009SP013812

PATIENT
  Age: 56 Year
  Sex: Female

DRUGS (4)
  1. INTEGRILIN [Suspect]
     Indication: CORONARY ARTERY DISEASE
     Dosage: ONCE; INDRP
     Dates: start: 20090615, end: 20090616
  2. HEPARIN [Suspect]
     Indication: DRUG USE FOR UNKNOWN INDICATION
     Dates: end: 20090619
  3. ANGIOMAX [Suspect]
     Indication: STENT PLACEMENT
     Dates: start: 20090616, end: 20090616
  4. PLAVIX [Suspect]
     Indication: STENT PLACEMENT
     Dosage: 30 MG;PO
     Route: 048
     Dates: start: 20090616, end: 20090616

REACTIONS (8)
  - CARDIO-RESPIRATORY ARREST [None]
  - CONVULSION [None]
  - HAEMODYNAMIC INSTABILITY [None]
  - HAEMOTHORAX [None]
  - POST PROCEDURAL HAEMATOMA [None]
  - POST PROCEDURAL HAEMORRHAGE [None]
  - RETROPERITONEAL HAEMORRHAGE [None]
  - UNRESPONSIVE TO STIMULI [None]
